FAERS Safety Report 5869110-6 (Version None)
Quarter: 2008Q3

REPORT INFORMATION
  Report Type: 
  Country: None (occurrence: None)
  Receive Date: 20080828
  Receipt Date: 20080819
  Transmission Date: 20090109
  Serious: Yes (Death)
  Sender: FDA-Public Use
  Company Number: 2008AL009670

PATIENT
  Age: 64 Year
  Sex: Female

DRUGS (2)
  1. DIGOXIN [Suspect]
     Indication: CARDIAC DISORDER
     Dosage: 0.125MG, DAILY, PO
     Route: 048
     Dates: start: 20080201
  2. BENACOR [Concomitant]

REACTIONS (3)
  - DEPRESSION [None]
  - SOMNOLENCE [None]
  - UNRESPONSIVE TO STIMULI [None]
